APPROVED DRUG PRODUCT: HYDROXYZINE PAMOATE
Active Ingredient: HYDROXYZINE PAMOATE
Strength: EQ 50MG HYDROCHLORIDE
Dosage Form/Route: CAPSULE;ORAL
Application: A089146 | Product #001
Applicant: PAR PHARMACEUTICAL INC
Approved: Mar 17, 1986 | RLD: No | RS: No | Type: DISCN